FAERS Safety Report 4370305-1 (Version None)
Quarter: 2004Q2

REPORT INFORMATION
  Report Type: 
  Country: None (occurrence: None)
  Receive Date: 20040603
  Receipt Date: 20040305
  Transmission Date: 20050107
  Serious: Yes (Disabling)
  Sender: FDA-Public Use
  Company Number: US-BRISTOL-MYERS SQUIBB COMPANY-12526455

PATIENT
  Age: 12 Year
  Sex: Female
  Weight: 30 kg

DRUGS (4)
  1. ABILIFY [Suspect]
     Indication: AGGRESSION
     Dosage: 28-MAR-03 5MG, INC TO 15 MG IN AUG-03, INC TO 30 MG IN JAN-04, REDUCED 05-MAR-04
     Route: 048
     Dates: start: 20030328
  2. ABILIFY [Suspect]
     Indication: AGITATION
     Dosage: 28-MAR-03 5MG, INC TO 15 MG IN AUG-03, INC TO 30 MG IN JAN-04, REDUCED 05-MAR-04
     Route: 048
     Dates: start: 20030328
  3. ABILIFY [Suspect]
     Indication: OBSESSIVE-COMPULSIVE DISORDER
     Dosage: 28-MAR-03 5MG, INC TO 15 MG IN AUG-03, INC TO 30 MG IN JAN-04, REDUCED 05-MAR-04
     Route: 048
     Dates: start: 20030328
  4. ZOLOFT [Concomitant]

REACTIONS (1)
  - URINARY INCONTINENCE [None]
